FAERS Safety Report 10243444 (Version 1)
Quarter: 2014Q2

REPORT INFORMATION
  Report Type: Spontaneous
  Country: US (occurrence: US)
  Receive Date: 20140618
  Receipt Date: 20140618
  Transmission Date: 20141212
  Serious: No
  Sender: FDA-Public Use
  Company Number: US-BAYER-2014-091318

PATIENT
  Age: 86 Year
  Sex: Female
  Weight: 67 kg

DRUGS (5)
  1. ALEVE TABLET [Suspect]
     Indication: BACK PAIN
     Dosage: 1 DF, PRN
     Route: 048
     Dates: start: 2013, end: 2013
  2. ATENOLOL [Concomitant]
  3. BAYER ASPIRIN REGIMEN ADULT LOW STRENGTH [Concomitant]
  4. COQ10 [Concomitant]
  5. VITAMIN D3 [Concomitant]

REACTIONS (1)
  - Insomnia [Recovered/Resolved]
